FAERS Safety Report 9199007 (Version 9)
Quarter: 2013Q4

REPORT INFORMATION
  Report Type: Spontaneous
  Country: US (occurrence: US)
  Receive Date: 20130329
  Receipt Date: 20131107
  Transmission Date: 20140711
  Serious: Yes (Life-Threatening, Hospitalization, Disabling, Other)
  Sender: FDA-Public Use
  Company Number: US-MERCK-1303USA013480

PATIENT
  Sex: Female
  Weight: 83.9 kg

DRUGS (7)
  1. JANUMET [Suspect]
     Indication: INSULIN-REQUIRING TYPE 2 DIABETES MELLITUS
     Dosage: 500 MG/50 MG, BID
     Route: 048
     Dates: start: 20071129
  2. JANUMET [Suspect]
     Dosage: 1000 MG/50 MG, BID
     Route: 048
     Dates: end: 20090709
  3. BYETTA [Suspect]
     Indication: TYPE 2 DIABETES MELLITUS
     Dosage: 5 MICROGRAM, BID
     Dates: start: 20060209, end: 20060407
  4. BYETTA [Suspect]
     Dosage: 10 MICROGRAM, BID
     Dates: start: 20060306, end: 20100618
  5. VICTOZA [Suspect]
     Indication: TYPE 2 DIABETES MELLITUS
     Dosage: 18 MICROGRAM, QD
     Dates: start: 20100831, end: 20110112
  6. DIOVAN HCT [Concomitant]
     Indication: HYPERTENSION
     Dosage: 160/12.5, QD
     Route: 048
     Dates: start: 1996
  7. CYMBALTA [Concomitant]
     Indication: DEPRESSION
     Dosage: 30 MG, QD
     Route: 048
     Dates: start: 2000

REACTIONS (56)
  - Pancreatic carcinoma [Not Recovered/Not Resolved]
  - Pancreatectomy [Recovering/Resolving]
  - Malignant neoplasm of islets of Langerhans [Not Recovered/Not Resolved]
  - Intestinal adhesion lysis [Unknown]
  - Splenectomy [Recovering/Resolving]
  - Pyrexia [Recovered/Resolved]
  - Infection [Recovering/Resolving]
  - Peripancreatic fluid collection [Recovered/Resolved]
  - Pleural effusion [Recovering/Resolving]
  - Diabetes mellitus inadequate control [Recovering/Resolving]
  - Lymphadenectomy [Unknown]
  - Asthenia [Recovering/Resolving]
  - Atrial fibrillation [Unknown]
  - Liver function test abnormal [Unknown]
  - Melaena [Recovering/Resolving]
  - Arthropathy [Unknown]
  - Malaise [Unknown]
  - Coronary revascularisation [Unknown]
  - Knee arthroplasty [Unknown]
  - Knee arthroplasty [Unknown]
  - Nausea [Recovering/Resolving]
  - Diarrhoea [Recovering/Resolving]
  - Pancreatitis chronic [Not Recovered/Not Resolved]
  - Peripheral vascular disorder [Recovered/Resolved]
  - Thrombosis [Unknown]
  - Hypothyroidism [Unknown]
  - Knee operation [Unknown]
  - Viral infection [Unknown]
  - Coronary artery disease [Unknown]
  - Pancreatic cyst [Recovered/Resolved]
  - Weight decreased [Unknown]
  - Hypercholesterolaemia [Unknown]
  - Hepatic calcification [Unknown]
  - Renal cyst [Unknown]
  - Diverticulum intestinal [Unknown]
  - Arteriosclerosis [Unknown]
  - Aortic arteriosclerosis [Unknown]
  - Abdominal hernia [Unknown]
  - Post herpetic neuralgia [Unknown]
  - Herpes zoster [Recovering/Resolving]
  - Anaemia [Unknown]
  - Diverticulitis [Unknown]
  - Osteoarthritis [Unknown]
  - Tonsillectomy [Unknown]
  - Sinus bradycardia [Unknown]
  - Blood triglycerides increased [Unknown]
  - Cardiac murmur [Unknown]
  - Hypoglycaemia [Recovered/Resolved]
  - Localised intraabdominal fluid collection [Recovering/Resolving]
  - Blood chromogranin A increased [Unknown]
  - Gastrooesophageal reflux disease [Recovered/Resolved]
  - Road traffic accident [Unknown]
  - Back pain [Unknown]
  - Constipation [Unknown]
  - Nausea [Unknown]
  - Vomiting [Unknown]
